FAERS Safety Report 8942470 (Version 2)
Quarter: 2012Q4

REPORT INFORMATION
  Report Type: 
  Country: US (occurrence: US)
  Receive Date: 20121204
  Receipt Date: 20121205
  Transmission Date: 20130627
  Serious: No
  Sender: FDA-Public Use
  Company Number: US-ASTRAZENECA-2012SE87166

PATIENT
  Age: 68 Year
  Sex: Male

DRUGS (5)
  1. TOPROL XL [Suspect]
     Route: 048
  2. CRESTOR [Suspect]
     Indication: BLOOD CHOLESTEROL INCREASED
     Route: 048
     Dates: start: 201204, end: 201211
  3. BABY ASPIRIN [Concomitant]
  4. ENALAPRIL [Concomitant]
  5. JETOVAN [Concomitant]

REACTIONS (2)
  - Urine abnormality [Recovered/Resolved]
  - Drug dose omission [Unknown]
